FAERS Safety Report 7772596-3 (Version None)
Quarter: 2011Q3

REPORT INFORMATION
  Report Type: 
  Country: None (occurrence: None)
  Receive Date: 20110922
  Receipt Date: 20110113
  Transmission Date: 20111222
  Serious: No
  Sender: FDA-Public Use
  Company Number: US-ASTRAZENECA-2011SE02399

PATIENT
  Age: 27 Year
  Sex: Female
  Weight: 79.4 kg

DRUGS (4)
  1. ZOLOFT [Concomitant]
  2. XANAX [Concomitant]
  3. SEROQUEL XR [Suspect]
     Indication: BIPOLAR I DISORDER
     Route: 048
     Dates: start: 20090101, end: 20110111
  4. LYMICTAL [Concomitant]

REACTIONS (5)
  - FEELING OF BODY TEMPERATURE CHANGE [None]
  - CHILLS [None]
  - DRUG WITHDRAWAL SYNDROME [None]
  - DRUG DOSE OMISSION [None]
  - VOMITING [None]
